FAERS Safety Report 11928186 (Version 3)
Quarter: 2016Q1

REPORT INFORMATION
  Report Type: Spontaneous
  Country: US (occurrence: US)
  Receive Date: 20160119
  Receipt Date: 20160202
  Transmission Date: 20160526
  Serious: No
  Sender: FDA-Public Use
  Company Number: US-PFIZER INC-2016014469

PATIENT
  Age: 57 Year
  Sex: Female

DRUGS (2)
  1. INSULIN [Concomitant]
     Active Substance: INSULIN NOS
     Indication: DIABETES MELLITUS
     Dosage: UNK UNK, 4X/DAY
  2. GABAPENTIN. [Suspect]
     Active Substance: GABAPENTIN
     Indication: PAIN
     Dosage: 900 MG, DAILY (300 MG IN THE MORNING AND TWO 300 MG CAPSULES AT NIGHT)
     Dates: start: 2008, end: 20160111

REACTIONS (2)
  - Drug ineffective [Unknown]
  - Drug tolerance [Unknown]

NARRATIVE: CASE EVENT DATE: 201512
